FAERS Safety Report 10934383 (Version 1)
Quarter: 2015Q1

REPORT INFORMATION
  Report Type: Spontaneous
  Country: US (occurrence: US)
  Receive Date: 20150320
  Receipt Date: 20150320
  Transmission Date: 20150721
  Serious: No
  Sender: FDA-Public Use
  Company Number: US-AMGEN-USASP2015024115

PATIENT
  Age: 57 Year
  Sex: Male

DRUGS (8)
  1. LYRICA [Suspect]
     Active Substance: PREGABALIN
     Indication: RHEUMATOID ARTHRITIS
  2. LYRICA [Suspect]
     Active Substance: PREGABALIN
     Indication: CHRONIC OBSTRUCTIVE PULMONARY DISEASE
  3. LYRICA [Suspect]
     Active Substance: PREGABALIN
     Indication: HYPERSENSITIVITY VASCULITIS
  4. METHOTREXATE [Concomitant]
     Active Substance: METHOTREXATE
     Dosage: 25 MG, QWK
  5. ENBREL [Suspect]
     Active Substance: ETANERCEPT
     Indication: RHEUMATOID ARTHRITIS
     Dosage: 50 MG, 2 TIMES/WK
     Route: 065
  6. LYRICA [Suspect]
     Active Substance: PREGABALIN
     Indication: FIBROMYALGIA
     Dosage: 75 MG, UNK
     Route: 065
  7. MOBIC [Concomitant]
     Active Substance: MELOXICAM
     Dosage: 7.5 MG, 12XDAY
  8. PROZAC [Concomitant]
     Active Substance: FLUOXETINE HYDROCHLORIDE
     Indication: ANGER
     Dosage: 20 MG, QD

REACTIONS (4)
  - Pruritus [Not Recovered/Not Resolved]
  - Anger [Recovered/Resolved]
  - Erythema [Not Recovered/Not Resolved]
  - Pain [Not Recovered/Not Resolved]
